FAERS Safety Report 22238689 (Version 3)
Quarter: 2023Q2

REPORT INFORMATION
  Report Type: Report from Study
  Country: AE (occurrence: None)
  Receive Date: 20230421
  Receipt Date: 20230529
  Transmission Date: 20230721
  Serious: Yes (Hospitalization)
  Sender: FDA-Public Use
  Company Number: 2023A091732

PATIENT
  Age: 45 Year
  Sex: Female
  Weight: 111 kg

DRUGS (2)
  1. CILGAVIMAB\TIXAGEVIMAB [Suspect]
     Active Substance: CILGAVIMAB\TIXAGEVIMAB
     Indication: COVID-19 prophylaxis
     Dosage: 3 ML /2 SEPARATE SEQUENTIAL IM INJECTIONS (ONE FOR AZD8895 AND ONE FOR AZD1061) AT DIFFERENT INJE...
     Route: 030
     Dates: start: 20220713
  2. CILGAVIMAB\TIXAGEVIMAB [Suspect]
     Active Substance: CILGAVIMAB\TIXAGEVIMAB
     Indication: COVID-19 prophylaxis
     Dosage: 3 ML /2 SEPARATE SEQUENTIAL IM INJECTIONS (ONE FOR AZD8895 AND ONE FOR AZD1061) AT DIFFERENT INJE...
     Route: 030
     Dates: start: 20220921

REACTIONS (2)
  - Urinary tract infection [Recovered/Resolved]
  - Cancer pain [Recovered/Resolved]

NARRATIVE: CASE EVENT DATE: 20230317
